FAERS Safety Report 9385912 (Version 3)
Quarter: 2013Q3

REPORT INFORMATION
  Report Type: Spontaneous
  Country: US (occurrence: US)
  Receive Date: 20130705
  Receipt Date: 20130723
  Transmission Date: 20140515
  Serious: Yes (Hospitalization)
  Sender: FDA-Public Use
  Company Number: US-GILEAD-2013-0078513

PATIENT
  Sex: Male

DRUGS (7)
  1. LETAIRIS [Suspect]
     Indication: PULMONARY ARTERIAL HYPERTENSION
     Dosage: 5 MG, QD
     Route: 048
     Dates: start: 20130611
  2. TRACLEER /01587701/ [Suspect]
  3. ADCIRCA [Concomitant]
  4. EPOPROSTENOL [Concomitant]
  5. COUMADIN                           /00014802/ [Concomitant]
  6. EPOPROSTENOL [Concomitant]
  7. EPOPROSTENOL [Concomitant]

REACTIONS (6)
  - Device occlusion [Unknown]
  - Central venous catheterisation [Unknown]
  - Chest pain [Unknown]
  - Local swelling [Unknown]
  - Swelling [Not Recovered/Not Resolved]
  - Nasal congestion [Unknown]
